FAERS Safety Report 19139976 (Version 2)
Quarter: 2021Q2

REPORT INFORMATION
  Report Type: Spontaneous
  Country: IN (occurrence: IN)
  Receive Date: 20210415
  Receipt Date: 20210426
  Transmission Date: 20210717
  Serious: Yes (Hospitalization, Other)
  Sender: FDA-Public Use
  Company Number: IN-BRISTOL-MYERS SQUIBB COMPANY-BMS-2021-033997

PATIENT
  Age: 28 Year
  Sex: Male

DRUGS (3)
  1. TRIAMCINOLONE ACETONIDE. [Suspect]
     Active Substance: TRIAMCINOLONE ACETONIDE
     Indication: ENDOCRINE OPHTHALMOPATHY
     Dosage: 1 DOSAGE FORM STEROID VIAL
     Route: 031
  2. STEROIDS [Concomitant]
     Active Substance: UNSPECIFIED INGREDIENT
     Indication: ENDOCRINE OPHTHALMOPATHY
     Dosage: UNK, 8 WEEKS
     Route: 048
  3. METHYLPREDNISOLONE. [Concomitant]
     Active Substance: METHYLPREDNISOLONE
     Indication: ENDOCRINE OPHTHALMOPATHY
     Dosage: 8 NO DURATION OF DRUG ADMINISTRATION  IN 1 QWK PULSE THERAPY
     Route: 042

REACTIONS (7)
  - Aspergillus infection [Recovering/Resolving]
  - Intentional product use issue [Unknown]
  - Optic nerve compression [Recovering/Resolving]
  - Exophthalmos [Recovered/Resolved]
  - Eye abscess [Recovering/Resolving]
  - Pupillary reflex impaired [Recovering/Resolving]
  - Chorioretinal folds [Recovering/Resolving]
